FAERS Safety Report 5069591-4 (Version None)
Quarter: 2006Q3

REPORT INFORMATION
  Report Type: 
  Country: None (occurrence: None)
  Receive Date: 20060731
  Receipt Date: 20060718
  Transmission Date: 20061208
  Serious: Yes (Other)
  Sender: FDA-Public Use
  Company Number: HQWYE083918JUL06

PATIENT
  Age: 18 Year
  Sex: Female

DRUGS (2)
  1. ADVIL [Suspect]
     Indication: MIGRAINE
  2. RIZATRIPTAN (RIZATRIPTAN) [Suspect]
     Indication: MIGRAINE

REACTIONS (2)
  - CEREBRAL HAEMATOMA [None]
  - CEREBRAL HAEMORRHAGE [None]
